FAERS Safety Report 9320720 (Version 1)
Quarter: 2013Q2

REPORT INFORMATION
  Report Type: Spontaneous
  Country: US (occurrence: US)
  Receive Date: 20130531
  Receipt Date: 20130531
  Transmission Date: 20140414
  Serious: No
  Sender: FDA-Public Use
  Company Number: US-BIOGENIDEC-2013BI047891

PATIENT
  Age: 62 Year
  Sex: Female

DRUGS (2)
  1. TYSABRI [Suspect]
     Indication: MULTIPLE SCLEROSIS
     Route: 042
     Dates: start: 20091124, end: 20101213
  2. COPAXONE [Concomitant]
     Indication: PRODUCT USED FOR UNKNOWN INDICATION

REACTIONS (2)
  - Feeling abnormal [Recovered/Resolved]
  - Malaise [Recovered/Resolved]
